FAERS Safety Report 5202137-6 (Version None)
Quarter: 2007Q1

REPORT INFORMATION
  Report Type: 
  Country: None (occurrence: None)
  Receive Date: 20070109
  Receipt Date: 20070102
  Transmission Date: 20070707
  Serious: Yes (Hospitalization)
  Sender: FDA-Public Use
  Company Number: JP-AVENTIS-200622493GDDC

PATIENT
  Age: 77 Year
  Sex: Male

DRUGS (5)
  1. GLYBURIDE [Suspect]
     Indication: DIABETES MELLITUS
     Route: 048
     Dates: start: 20061111, end: 20061120
  2. PANALDINE [Suspect]
     Indication: CORONARY ANGIOPLASTY
     Route: 048
     Dates: start: 20061110, end: 20061115
  3. DIOVANE [Suspect]
     Indication: HYPERTENSION
  4. BUFFERIN [Suspect]
     Indication: THROMBOSIS PROPHYLAXIS
     Dates: start: 20061110
  5. OMEPRAZOLE [Suspect]

REACTIONS (1)
  - INTERSTITIAL LUNG DISEASE [None]
